FAERS Safety Report 9867177 (Version 2)
Quarter: 2014Q1

REPORT INFORMATION
  Report Type: Spontaneous
  Country: FR (occurrence: FR)
  Receive Date: 20140204
  Receipt Date: 20140314
  Transmission Date: 20141002
  Serious: Yes (Hospitalization, Other)
  Sender: FDA-Public Use
  Company Number: FR-JNJFOC-20140117666

PATIENT
  Age: 32 Year
  Sex: Male
  Weight: 67 kg

DRUGS (3)
  1. REMICADE [Suspect]
     Indication: CROHN^S DISEASE
     Dosage: 5TH OR 6 TH INFUSION
     Route: 042
  2. REMICADE [Suspect]
     Indication: CROHN^S DISEASE
     Route: 042
     Dates: end: 20140106
  3. CORTANCYL [Suspect]
     Indication: CROHN^S DISEASE
     Route: 048
     Dates: end: 20140106

REACTIONS (2)
  - Lung disorder [Not Recovered/Not Resolved]
  - Pneumonia cryptococcal [Recovering/Resolving]
